FAERS Safety Report 9861846 (Version 2)
Quarter: 2014Q1

REPORT INFORMATION
  Report Type: Spontaneous
  Country: US (occurrence: US)
  Receive Date: 20140203
  Receipt Date: 20140205
  Transmission Date: 20141002
  Serious: No
  Sender: FDA-Public Use
  Company Number: US-PFIZER INC-2014027417

PATIENT
  Sex: Female

DRUGS (1)
  1. LYRICA [Suspect]
     Dosage: UNK
     Dates: start: 20130101, end: 20131115

REACTIONS (7)
  - Medication error [Unknown]
  - Drug withdrawal syndrome [Unknown]
  - Malaise [Unknown]
  - Anxiety [Unknown]
  - Diarrhoea [Unknown]
  - Fibromyalgia [Unknown]
  - Weight increased [Unknown]
